FAERS Safety Report 5457967-2 (Version None)
Quarter: 2007Q3

REPORT INFORMATION
  Report Type: 
  Country: None (occurrence: None)
  Receive Date: 20070917
  Receipt Date: 20070907
  Transmission Date: 20080115
  Serious: Yes (Hospitalization)
  Sender: FDA-Public Use
  Company Number: 2007BI019235

PATIENT
  Age: 48 Year
  Sex: Female
  Weight: 47.1741 kg

DRUGS (3)
  1. NATALIZUMAB [Suspect]
     Indication: MULTIPLE SCLEROSIS
     Dosage: 300 MG; QM; IV
     Route: 042
     Dates: start: 20041201, end: 20050201
  2. NATALIZUMAB [Suspect]
     Indication: MULTIPLE SCLEROSIS
     Dosage: 300 MG; QM; IV
     Route: 042
     Dates: start: 20061201
  3. DETROL LA [Concomitant]

REACTIONS (3)
  - AMENORRHOEA [None]
  - DEHYDRATION [None]
  - PREGNANCY TEST FALSE POSITIVE [None]
